FAERS Safety Report 7536687-4 (Version None)
Quarter: 2011Q2

REPORT INFORMATION
  Report Type: 
  Country: None (occurrence: None)
  Receive Date: 20110609
  Receipt Date: 20110524
  Transmission Date: 20111010
  Serious: Yes (Hospitalization, Congenital Anomaly)
  Sender: FDA-Public Use
  Company Number: A0930626A

PATIENT
  Sex: Male
  Weight: 2.7 kg

DRUGS (1)
  1. PAXIL [Suspect]
     Dosage: 30MG PER DAY
     Route: 064

REACTIONS (2)
  - DRUG EXPOSURE DURING PREGNANCY [None]
  - CONGENITAL SPINAL CORD ANOMALY [None]
